FAERS Safety Report 4506282-X (Version None)
Quarter: 2004Q4

REPORT INFORMATION
  Report Type: 
  Country: None (occurrence: None)
  Receive Date: 20041119
  Receipt Date: 20041115
  Transmission Date: 20050328
  Serious: Yes (Hospitalization)
  Sender: FDA-Public Use
  Company Number: US-MERCK-0411USA02727

PATIENT
  Age: 74 Year
  Sex: Female

DRUGS (6)
  1. VIOXX [Suspect]
     Route: 048
     Dates: start: 20021115, end: 20040215
  2. COZAAR [Concomitant]
     Route: 048
     Dates: start: 19991115, end: 20040215
  3. NORVASC [Concomitant]
     Route: 065
     Dates: start: 19991115
  4. SYNTHROID [Concomitant]
     Route: 065
     Dates: start: 19601115
  5. INSULIN [Concomitant]
     Route: 065
     Dates: start: 19861115
  6. ZOLOFT [Concomitant]
     Route: 065
     Dates: start: 19991115

REACTIONS (2)
  - ADVERSE EVENT [None]
  - LOSS OF CONSCIOUSNESS [None]
